FAERS Safety Report 9933152 (Version 1)
Quarter: 2014Q1

REPORT INFORMATION
  Report Type: Spontaneous
  Country: US (occurrence: US)
  Receive Date: 20140228
  Receipt Date: 20140228
  Transmission Date: 20141002
  Serious: No
  Sender: FDA-Public Use
  Company Number: US-GLAXOSMITHKLINE-A1051459A

PATIENT
  Age: 54 Year
  Sex: Female

DRUGS (10)
  1. LAMICTAL [Suspect]
     Indication: BIPOLAR DISORDER
     Dosage: 100MG PER DAY
     Route: 048
     Dates: start: 2010
  2. LANTUS [Concomitant]
  3. HUMALOG [Concomitant]
  4. JANUVIA [Concomitant]
  5. METFORMIN [Concomitant]
  6. LISINOPRIL [Concomitant]
  7. NASONEX [Concomitant]
  8. VESICARE [Concomitant]
  9. NORETHINDRONE [Concomitant]
  10. KLONOPIN [Concomitant]

REACTIONS (3)
  - Blood glucose increased [Unknown]
  - Food craving [Unknown]
  - Depression [Unknown]
